FAERS Safety Report 19152655 (Version 1)
Quarter: 2021Q2

REPORT INFORMATION
  Report Type: Spontaneous
  Country: US (occurrence: US)
  Receive Date: 20210417
  Receipt Date: 20210417
  Transmission Date: 20210717
  Serious: Yes (Hospitalization)
  Sender: FDA-Public Use
  Company Number: None

PATIENT
  Age: 62 Year
  Sex: Female
  Weight: 129.1 kg

DRUGS (2)
  1. RITUXIMAB (MOABC2B8 ANTI CD20, CHIMERIC) [Suspect]
     Active Substance: RITUXIMAB
     Dates: end: 20210325
  2. CYTARABINE. [Suspect]
     Active Substance: CYTARABINE
     Dates: end: 20210328

REACTIONS (6)
  - Headache [None]
  - Photopsia [None]
  - Anaemia [None]
  - Fatigue [None]
  - Dizziness [None]
  - Platelet count decreased [None]

NARRATIVE: CASE EVENT DATE: 20210405
